FAERS Safety Report 8594929-0 (Version None)
Quarter: 2012Q2

REPORT INFORMATION
  Report Type: 
  Country: None (occurrence: None)
  Receive Date: 20120423
  Receipt Date: 20100720
  Transmission Date: 20120825
  Serious: Yes (Hospitalization, Other)
  Sender: FDA-Public Use
  Company Number: PHHY2010US33657

PATIENT
  Sex: Male

DRUGS (1)
  1. EXJADE [Suspect]
     Indication: SICKLE CELL ANAEMIA
     Dosage: 1375 MG, ORAL
     Route: 048
     Dates: start: 20081222, end: 20100510

REACTIONS (3)
  - LUNG DISORDER [None]
  - SICKLE CELL ANAEMIA WITH CRISIS [None]
  - DIARRHOEA [None]
